FAERS Safety Report 14255755 (Version 2)
Quarter: 2018Q1

REPORT INFORMATION
  Report Type: Report from Study
  Country: US (occurrence: US)
  Receive Date: 20171206
  Receipt Date: 20180201
  Transmission Date: 20180508
  Serious: Yes (Death, Other)
  Sender: FDA-Public Use
  Company Number: US-RETROPHIN, INC.-2017RTN00124

PATIENT
  Age: 3 Year
  Sex: Male

DRUGS (2)
  1. MULTIPLE MEDICATIONS (UNSPECIFIED) [Concomitant]
  2. CHOLBAM [Suspect]
     Active Substance: CHOLIC ACID
     Indication: CEREBROHEPATORENAL SYNDROME
     Dosage: 100 MG, 1X/DAY
     Dates: start: 20150624, end: 201710

REACTIONS (2)
  - Cardio-respiratory arrest [Fatal]
  - Upper respiratory tract infection [Not Recovered/Not Resolved]

NARRATIVE: CASE EVENT DATE: 20171031
